FAERS Safety Report 7182969-8 (Version None)
Quarter: 2010Q4

REPORT INFORMATION
  Report Type: 
  Country: None (occurrence: None)
  Receive Date: 20101222
  Receipt Date: 20101210
  Transmission Date: 20110411
  Serious: Yes (Hospitalization)
  Sender: FDA-Public Use
  Company Number: CA-JNJFOC-20100601746

PATIENT
  Sex: Female
  Weight: 99 kg

DRUGS (3)
  1. REMICADE [Suspect]
     Indication: RHEUMATOID ARTHRITIS
     Route: 042
  2. REMICADE [Suspect]
     Dosage: DURATION =MORE THAN 1 YEAR
     Route: 042
  3. PROZAC [Concomitant]
     Indication: DEPRESSION
     Route: 048

REACTIONS (2)
  - ACUTE MYOCARDIAL INFARCTION [None]
  - CORONARY ARTERY OCCLUSION [None]
